FAERS Safety Report 8630373 (Version 3)
Quarter: 2012Q4

REPORT INFORMATION
  Report Type: 
  Country: NL (occurrence: NL)
  Receive Date: 20120622
  Receipt Date: 20121227
  Transmission Date: 20130627
  Serious: Yes (Other)
  Sender: FDA-Public Use
  Company Number: NL-AMGEN-NLDSP2012037847

PATIENT
  Age: 61 Year
  Sex: Male

DRUGS (3)
  1. ENBREL [Suspect]
     Indication: RHEUMATOID ARTHRITIS
     Dosage: 50 mg, weekly
     Dates: start: 2008
  2. MTX                                /00113802/ [Concomitant]
     Dosage: UNK
  3. FOLIC ACID [Concomitant]
     Dosage: UNK

REACTIONS (3)
  - Rib fracture [Recovered/Resolved]
  - Fall [Recovered/Resolved]
  - Infection [Recovered/Resolved]
